FAERS Safety Report 25894313 (Version 1)
Quarter: 2025Q4

REPORT INFORMATION
  Report Type: Spontaneous
  Country: CN (occurrence: CN)
  Receive Date: 20251008
  Receipt Date: 20251008
  Transmission Date: 20260117
  Serious: Yes (Other)
  Sender: BAXTER
  Company Number: None

PATIENT
  Age: 47 Year
  Sex: Female
  Weight: 53 kg

DRUGS (6)
  1. CYCLOPHOSPHAMIDE [Suspect]
     Active Substance: CYCLOPHOSPHAMIDE
     Indication: Breast cancer female
     Dosage: 0.7 G, QD (INTRAPUMP INJECTION)
     Route: 065
     Dates: start: 20250913, end: 20250913
  2. SODIUM CHLORIDE [Suspect]
     Active Substance: SODIUM CHLORIDE
     Dosage: 500 ML, QD (INTRAPUMP INJECTION) INJECTION WITH CYCLOPHOSPHAMIDE VIA MICROPUMP
     Route: 065
     Dates: start: 20250913, end: 20250913
  3. DEXTROSE [Suspect]
     Active Substance: DEXTROSE MONOHYDRATE
     Dosage: 250 ML, QD (INTRAPUMP INJECTION) INJECTION WITH DOXORUBICIN VIA MICROPUMP
     Route: 065
     Dates: start: 20250913, end: 20250913
  4. DEXTROSE [Suspect]
     Active Substance: DEXTROSE MONOHYDRATE
     Dosage: 250 ML, QD (INTRAPUMP INJECTION) INJECTION WITH DOCETAXEL VIA MICROPUMP
     Route: 065
     Dates: start: 20250913, end: 20250913
  5. DOCETAXEL [Suspect]
     Active Substance: DOCETAXEL
     Indication: Breast cancer female
     Dosage: 105 MG, QD (INTRAPUMP INJECTION)
     Route: 065
     Dates: start: 20250913, end: 20250913
  6. DOXORUBICIN HYDROCHLORIDE [Suspect]
     Active Substance: DOXORUBICIN HYDROCHLORIDE
     Indication: Breast cancer female
     Dosage: 70 MG, QD
     Route: 065
     Dates: start: 20250913, end: 20250913

REACTIONS (1)
  - Myelosuppression [Recovering/Resolving]

NARRATIVE: CASE EVENT DATE: 20250917
